FAERS Safety Report 9491998 (Version 1)
Quarter: 2013Q3

REPORT INFORMATION
  Report Type: Spontaneous
  Country: US (occurrence: US)
  Receive Date: 20130830
  Receipt Date: 20130830
  Transmission Date: 20140515
  Serious: Yes (Death)
  Sender: FDA-Public Use
  Company Number: US-SANOFI-AVENTIS-2013SA085970

PATIENT
  Age: 66 Year
  Sex: Female

DRUGS (2)
  1. LOVENOX [Suspect]
     Route: 065
  2. ENOXAPARIN SODIUM - WINTHROP [Suspect]
     Route: 058

REACTIONS (1)
  - Pancreatic carcinoma [Fatal]
